FAERS Safety Report 8827383 (Version 4)
Quarter: 2012Q4

REPORT INFORMATION
  Report Type: 
  Country: US (occurrence: US)
  Receive Date: 20121005
  Receipt Date: 20121106
  Transmission Date: 20130627
  Serious: Yes (Hospitalization)
  Sender: FDA-Public Use
  Company Number: US-ASTRAZENECA-2012SE73917

PATIENT
  Age: 28 Year
  Sex: Female

DRUGS (7)
  1. SYMBICORT PMDI [Suspect]
     Indication: ASTHMA
     Dosage: 160/4.5 TWO TIMES A DAY
     Route: 055
  2. NASONEX [Concomitant]
  3. SINGULAIR [Concomitant]
  4. PREDNISONE [Concomitant]
  5. ANTIHISTAMINES [Concomitant]
  6. STEROIDS [Concomitant]
     Route: 048
  7. REMICAID [Concomitant]
     Indication: CROHN^S DISEASE

REACTIONS (13)
  - Crohn^s disease [Unknown]
  - Activities of daily living impaired [Unknown]
  - Asthma [Unknown]
  - Sleep disorder due to general medical condition, insomnia type [Unknown]
  - Confusional state [Unknown]
  - Feeling abnormal [Unknown]
  - Paraesthesia [Unknown]
  - Dizziness [Unknown]
  - Dizziness [Unknown]
  - Headache [Unknown]
  - Swelling face [Unknown]
  - Insomnia [Unknown]
  - Intentional drug misuse [Unknown]
